FAERS Safety Report 8575958-X (Version None)
Quarter: 2012Q3

REPORT INFORMATION
  Report Type: 
  Country: None (occurrence: None)
  Receive Date: 20120807
  Receipt Date: 20120727
  Transmission Date: 20120928
  Serious: Yes (Hospitalization)
  Sender: FDA-Public Use
  Company Number: US-BAYER-2012-046719

PATIENT
  Age: 25 Year
  Sex: Female

DRUGS (5)
  1. MORPHINE SULFATE [Concomitant]
  2. YASMIN [Suspect]
  3. MOTRIN [Concomitant]
     Dosage: 200 MG, PRN
  4. CIPROFLOXACIN HCL [Concomitant]
     Indication: URINARY TRACT INFECTION
  5. ZOFRAN [Concomitant]

REACTIONS (1)
  - DEEP VEIN THROMBOSIS [None]
